FAERS Safety Report 25661546 (Version 2)
Quarter: 2025Q4

REPORT INFORMATION
  Report Type: Report from Study
  Country: US (occurrence: US)
  Receive Date: 20250808
  Receipt Date: 20251224
  Transmission Date: 20260117
  Serious: No
  Sender: DR REDDYS
  Company Number: US-DRL-USA-USA/2025/07/011612

PATIENT
  Age: 23 Year
  Sex: Male
  Weight: 70 kg

DRUGS (2)
  1. JAVYGTOR [Suspect]
     Active Substance: SAPROPTERIN DIHYDROCHLORIDE
     Indication: Phenylketonuria
     Dosage: PATIENT HAD BEEN TAKING IT IN 4 OZ OF WATER OR APPLE JUICE
     Route: 048
     Dates: start: 20250515
  2. JAVYGTOR [Suspect]
     Active Substance: SAPROPTERIN DIHYDROCHLORIDE
     Indication: Phenylketonuria
     Dosage: PATIENT HAD BEEN TAKING IT IN 4 OZ OF WATER OR APPLE JUICE
     Route: 048
     Dates: start: 20250515, end: 20250918

REACTIONS (3)
  - Vomiting [Recovered/Resolved]
  - Abdominal pain upper [Not Recovered/Not Resolved]
  - Feeling abnormal [Not Recovered/Not Resolved]

NARRATIVE: CASE EVENT DATE: 20250722
